FAERS Safety Report 5342284-1 (Version None)
Quarter: 2007Q2

REPORT INFORMATION
  Report Type: 
  Country: None (occurrence: None)
  Receive Date: 20070416
  Receipt Date: 20070309
  Transmission Date: 20071010
  Serious: No
  Sender: FDA-Public Use
  Company Number: 2007SP000863

PATIENT
  Age: 73 Year
  Sex: Female

DRUGS (8)
  1. LUNESTA [Suspect]
     Dosage: SEE IMAGE
     Route: 048
     Dates: start: 20070201, end: 20070201
  2. LUNESTA [Suspect]
     Dosage: SEE IMAGE
     Route: 048
     Dates: start: 20070201
  3. LUNESTA [Suspect]
     Dosage: SEE IMAGE
     Route: 048
     Dates: start: 20070201
  4. PERCOCET [Concomitant]
  5. NORTRIPTYLINE HCL [Concomitant]
  6. SOTALOL HYDROCHLORIDE [Concomitant]
  7. PHENYTOIN [Concomitant]
  8. CADUET [Concomitant]

REACTIONS (2)
  - DRUG INEFFECTIVE [None]
  - INSOMNIA [None]
